FAERS Safety Report 7364745-6 (Version None)
Quarter: 2011Q1

REPORT INFORMATION
  Report Type: 
  Country: None (occurrence: None)
  Receive Date: 20110316
  Receipt Date: 20110316
  Transmission Date: 20110831
  Serious: Yes (Life-Threatening, Disabling)
  Sender: FDA-Public Use
  Company Number: None

PATIENT
  Sex: Female
  Weight: 63.64 kg

DRUGS (1)
  1. ALTEPLASE 100MG VIAL GENENTECH INC USA [Suspect]
     Indication: CEREBROVASCULAR ACCIDENT
     Dosage: ALTEPLASE 5.7MG  IV BOLUS; ALTEPLASE 51CC/HR IV DRIP
     Route: 040
     Dates: start: 20110221, end: 20110221

REACTIONS (1)
  - ANGIOEDEMA [None]
